FAERS Safety Report 13096713 (Version 1)
Quarter: 2017Q1

REPORT INFORMATION
  Report Type: Spontaneous
  Country: GB (occurrence: GB)
  Receive Date: 20170109
  Receipt Date: 20170109
  Transmission Date: 20170428
  Serious: Yes (Hospitalization, Other)
  Sender: FDA-Public Use
  Company Number: GB-GLENMARK PHARMACEUTICALS-2017GMK025796

PATIENT
  Age: 63 Year
  Sex: Male

DRUGS (3)
  1. HYDROCORTISONE BUTYRATE. [Suspect]
     Active Substance: HYDROCORTISONE BUTYRATE
     Dosage: 25 MG, QD IN DIVIDED DOSES
     Route: 065
  2. HYDROCORTISONE BUTYRATE. [Suspect]
     Active Substance: HYDROCORTISONE BUTYRATE
     Dosage: 60 MG, QD
     Route: 065
  3. HYDROCORTISONE BUTYRATE. [Suspect]
     Active Substance: HYDROCORTISONE BUTYRATE
     Indication: ADDISON^S DISEASE
     Dosage: 100 MG, QD
     Route: 065

REACTIONS (4)
  - Spinal cord compression [Recovering/Resolving]
  - Paraparesis [Recovering/Resolving]
  - Sensory loss [Recovering/Resolving]
  - Epidural lipomatosis [Recovering/Resolving]
